FAERS Safety Report 7092875-5 (Version None)
Quarter: 2010Q4

REPORT INFORMATION
  Report Type: 
  Country: None (occurrence: None)
  Receive Date: 20101110
  Receipt Date: 20101105
  Transmission Date: 20110411
  Serious: No
  Sender: FDA-Public Use
  Company Number: US-PFIZER INC-2010141801

PATIENT
  Sex: Female
  Weight: 54 kg

DRUGS (2)
  1. PROCARDIA [Suspect]
     Indication: HYPERTENSION
     Dosage: 30 MG, DAILY
     Route: 048
     Dates: start: 20101021, end: 20101021
  2. PROCARDIA [Suspect]
     Dosage: 30 MG, 1X/DAY
     Route: 048
     Dates: start: 20101105

REACTIONS (3)
  - ACTIVITIES OF DAILY LIVING IMPAIRED [None]
  - ASTHENIA [None]
  - FATIGUE [None]
